FAERS Safety Report 11945225 (Version 3)
Quarter: 2016Q3

REPORT INFORMATION
  Report Type: Report from Study
  Country: US (occurrence: US)
  Receive Date: 20160125
  Receipt Date: 20160721
  Transmission Date: 20161109
  Serious: Yes (Hospitalization, Other)
  Sender: FDA-Public Use
  Company Number: US-JNJFOC-20151216193

PATIENT
  Age: 70 Year
  Sex: Female

DRUGS (10)
  1. CALCIUM CITRATE [Concomitant]
     Active Substance: CALCIUM CITRATE
  2. LOSARTAN. [Concomitant]
     Active Substance: LOSARTAN
  3. LEVOTHYROXINE. [Concomitant]
     Active Substance: LEVOTHYROXINE
  4. FENOFIBRATE. [Concomitant]
     Active Substance: FENOFIBRATE
  5. NOVOLOG [Concomitant]
     Active Substance: INSULIN ASPART
  6. ZETIA [Concomitant]
     Active Substance: EZETIMIBE
  7. TOPROL XL [Concomitant]
     Active Substance: METOPROLOL SUCCINATE
  8. IMBRUVICA [Suspect]
     Active Substance: IBRUTINIB
     Indication: ACUTE LYMPHOCYTIC LEUKAEMIA
     Route: 048
     Dates: start: 20151202
  9. CRESTOR [Concomitant]
     Active Substance: ROSUVASTATIN CALCIUM
  10. ASPIRIN. [Concomitant]
     Active Substance: ASPIRIN

REACTIONS (14)
  - Apathy [Unknown]
  - Decreased appetite [Unknown]
  - Impaired healing [Unknown]
  - Fatigue [Unknown]
  - Sepsis [Unknown]
  - Arthralgia [Unknown]
  - Coma [Unknown]
  - Laceration [Unknown]
  - Muscle tightness [Unknown]
  - Weight decreased [Unknown]
  - Acne [Unknown]
  - Dysphagia [Unknown]
  - Rash [Unknown]
  - Asthenia [Unknown]

NARRATIVE: CASE EVENT DATE: 201512
